FAERS Safety Report 6446428-X (Version None)
Quarter: 2009Q4

REPORT INFORMATION
  Report Type: 
  Country: None (occurrence: None)
  Receive Date: 20091119
  Receipt Date: 20091109
  Transmission Date: 20100525
  Serious: Yes (Other)
  Sender: FDA-Public Use
  Company Number: PHHY2009DE49058

PATIENT
  Age: 55 Year
  Sex: Male
  Weight: 130 kg

DRUGS (1)
  1. RASILEZ [Suspect]
     Indication: HYPERTENSION
     Dosage: 150
     Route: 048
     Dates: start: 20090624, end: 20090928

REACTIONS (1)
  - RENAL IMPAIRMENT [None]
